FAERS Safety Report 6460259-6 (Version None)
Quarter: 2009Q4

REPORT INFORMATION
  Report Type: 
  Country: None (occurrence: None)
  Receive Date: 20091124
  Receipt Date: 20091116
  Transmission Date: 20100525
  Serious: Yes (Hospitalization, Other)
  Sender: FDA-Public Use
  Company Number: 2009AC000337

PATIENT
  Age: 68 Year
  Sex: Male

DRUGS (31)
  1. DIGOXIN [Suspect]
     Dosage: 0.25 MG; QD; PO
     Route: 048
     Dates: start: 20060401
  2. DIGOXIN [Suspect]
     Dosage: 0.125 MG; M-F; PO
     Route: 048
     Dates: start: 20080101
  3. COREG [Concomitant]
  4. KEFLEX [Concomitant]
  5. LASIX [Concomitant]
  6. HYDRALAZINE HCL [Concomitant]
  7. PROSCAR [Concomitant]
  8. K-DUR [Concomitant]
  9. LACTOBACILLUS [Concomitant]
  10. GLUCOTROL [Concomitant]
  11. EPOGEN [Concomitant]
  12. ASPIRIN [Concomitant]
  13. GLUCOPHAGE [Concomitant]
  14. LIPITOR [Concomitant]
  15. POTASSIUM CHLORIDE [Concomitant]
  16. ALTACE [Concomitant]
  17. BENICAR [Concomitant]
  18. NIFEDICAL [Concomitant]
  19. SYNTHROID [Concomitant]
  20. CEPHALEXIN [Concomitant]
  21. LOPRESSOR [Concomitant]
  22. LIPITOR [Concomitant]
  23. GLIPIZIDE [Concomitant]
  24. FUROSEMIDE [Concomitant]
  25. LEVOTHYROXINE SODIUM [Concomitant]
  26. NOVOLOG [Concomitant]
  27. VITAMIN D [Concomitant]
  28. HECTOROL [Concomitant]
  29. PROCARDIA [Concomitant]
  30. LANTUS [Concomitant]
  31. NOVOLOG [Concomitant]

REACTIONS (22)
  - AORTIC ANEURYSM [None]
  - ARTHRITIS INFECTIVE [None]
  - ASTHENIA [None]
  - BRADYCARDIA [None]
  - CARDIAC FAILURE [None]
  - CARDIAC FAILURE CONGESTIVE [None]
  - CARDIOACTIVE DRUG LEVEL INCREASED [None]
  - CHEST X-RAY ABNORMAL [None]
  - CREPITATIONS [None]
  - DIABETES MELLITUS [None]
  - ECONOMIC PROBLEM [None]
  - EMOTIONAL DISTRESS [None]
  - FATIGUE [None]
  - HAEMOGLOBIN DECREASED [None]
  - HYPERTENSION [None]
  - IMPAIRED WORK ABILITY [None]
  - ISCHAEMIC CARDIOMYOPATHY [None]
  - MULTIPLE INJURIES [None]
  - OEDEMA [None]
  - PAIN [None]
  - RENAL DISORDER [None]
  - SLEEP APNOEA SYNDROME [None]
